FAERS Safety Report 8098736-7 (Version None)
Quarter: 2012Q1

REPORT INFORMATION
  Report Type: 
  Country: None (occurrence: None)
  Receive Date: 20120131
  Receipt Date: 20120125
  Transmission Date: 20120608
  Serious: Yes (Other)
  Sender: FDA-Public Use
  Company Number: JP-PFIZER INC-2012021117

PATIENT
  Age: 91 Year
  Sex: Female

DRUGS (4)
  1. FUROSEMIDE [Concomitant]
     Dosage: 20 MG DAILY
  2. MICARDIS [Concomitant]
     Dosage: 40 MG DAILY
  3. LYRICA [Suspect]
     Dosage: 150 MG DAILY
     Route: 048
     Dates: start: 20120117, end: 20120120
  4. HUMALOG [Concomitant]
     Dosage: UNK

REACTIONS (2)
  - DEPRESSED LEVEL OF CONSCIOUSNESS [None]
  - BLOOD PRESSURE DECREASED [None]
